FAERS Safety Report 11864283 (Version 2)
Quarter: 2015Q4

REPORT INFORMATION
  Report Type: Spontaneous
  Country: JP (occurrence: JP)
  Receive Date: 20151223
  Receipt Date: 20151229
  Transmission Date: 20160305
  Serious: Yes (Hospitalization)
  Sender: FDA-Public Use
  Company Number: JP-PFIZER INC-2015459679

PATIENT
  Age: 70 Year
  Sex: Male

DRUGS (1)
  1. INLYTA [Suspect]
     Active Substance: AXITINIB
     Indication: RENAL CANCER
     Dosage: 10 MG, DAILY
     Route: 048
     Dates: start: 20150609, end: 20151215

REACTIONS (5)
  - Malignant pleural effusion [Recovered/Resolved]
  - Renal cancer [Unknown]
  - Decreased appetite [Not Recovered/Not Resolved]
  - Malnutrition [Unknown]
  - Disease progression [Unknown]

NARRATIVE: CASE EVENT DATE: 2015
